FAERS Safety Report 18248155 (Version 1)
Quarter: 2020Q3

REPORT INFORMATION
  Report Type: Spontaneous
  Country: US (occurrence: US)
  Receive Date: 20200909
  Receipt Date: 20200909
  Transmission Date: 20201103
  Serious: No
  Sender: FDA-Public Use
  Company Number: US-PERRIGO-20US008918

PATIENT
  Sex: Male

DRUGS (5)
  1. ALBUTEROL SULFATE. [Suspect]
     Active Substance: ALBUTEROL SULFATE
     Indication: CHRONIC OBSTRUCTIVE PULMONARY DISEASE
     Dosage: 180 MCG, 3 TO 4 TIMES DAILY, PM
     Route: 055
     Dates: start: 202004, end: 202004
  2. PREDNISONE. [Concomitant]
     Active Substance: PREDNISONE
     Indication: DYSPNOEA
     Dosage: UNKNOWN, UNKNOWN
     Route: 048
     Dates: start: 20200408
  3. ALBUTEROL SULFATE. [Suspect]
     Active Substance: ALBUTEROL SULFATE
     Dosage: 180 MCG, 3 TO 4 TIMES DAILY, PM
     Route: 055
     Dates: start: 2020, end: 2020
  4. ALBUTEROL SULFATE. [Suspect]
     Active Substance: ALBUTEROL SULFATE
     Dosage: UNKNOWN, 3 TO 4 TIMES DAILY, PM
     Route: 055
     Dates: start: 202004, end: 2020
  5. ALBUTEROL SULFATE. [Suspect]
     Active Substance: ALBUTEROL SULFATE
     Dosage: UNKNOWN, 3 TO 4 TIMES DAILY PM
     Route: 055
     Dates: start: 2020, end: 20200617

REACTIONS (2)
  - Device delivery system issue [Recovered/Resolved]
  - Underdose [Recovered/Resolved]

NARRATIVE: CASE EVENT DATE: 202004
